FAERS Safety Report 9114414 (Version 1)
Quarter: 2013Q1

REPORT INFORMATION
  Report Type: Spontaneous
  Country: US (occurrence: None)
  Receive Date: 20130220
  Receipt Date: 20130220
  Transmission Date: 20140127
  Serious: No
  Sender: FDA-Public Use
  Company Number: None

PATIENT
  Age: 63 Year
  Sex: Male
  Weight: 90.72 kg

DRUGS (1)
  1. OMEPRAZOLE [Suspect]
     Dosage: 1 CAPSULES  QAM   PO?1 MONTH  01/08/2013  --  02/08/2013
     Route: 048
     Dates: start: 20130108, end: 20130208

REACTIONS (4)
  - Gastrooesophageal reflux disease [None]
  - Condition aggravated [None]
  - Product substitution issue [None]
  - No therapeutic response [None]
